FAERS Safety Report 16120407 (Version 1)
Quarter: 2019Q1

REPORT INFORMATION
  Report Type: Spontaneous
  Country: ES (occurrence: ES)
  Receive Date: 20190326
  Receipt Date: 20190326
  Transmission Date: 20190418
  Serious: Yes (Other)
  Sender: FDA-Public Use
  Company Number: ES-BAXTER-2019BAX005602

PATIENT
  Age: 75 Year
  Sex: Female

DRUGS (1)
  1. VIAFLO CLORURO S?DICO 0,9% [Suspect]
     Active Substance: SODIUM CHLORIDE
     Indication: PRODUCT USED FOR UNKNOWN INDICATION
     Dosage: 20 X 500 ML BAGS
     Route: 042
     Dates: start: 20190109, end: 20190110

REACTIONS (2)
  - Respiratory failure [Unknown]
  - Wrong drug [Unknown]

NARRATIVE: CASE EVENT DATE: 20190110
